FAERS Safety Report 7226428-2 (Version None)
Quarter: 2011Q1

REPORT INFORMATION
  Report Type: 
  Country: None (occurrence: None)
  Receive Date: 20110105
  Receipt Date: 20101220
  Transmission Date: 20110831
  Serious: Yes (Other)
  Sender: FDA-Public Use
  Company Number: 2010BN000071

PATIENT
  Age: 78 Year
  Sex: Male

DRUGS (2)
  1. DACTINOMYCIN [Suspect]
     Indication: MALIGNANT MELANOMA
     Dosage: 75 UG/L; IART
     Route: 013
  2. MELPHALAN HYDROCHLORIDE [Suspect]
     Indication: MALIGNANT MELANOMA
     Dosage: 7.5 MG/L; IART
     Route: 013

REACTIONS (2)
  - COMPARTMENT SYNDROME [None]
  - TOXICITY TO VARIOUS AGENTS [None]
